FAERS Safety Report 22044184 (Version 1)
Quarter: 2023Q1

REPORT INFORMATION
  Report Type: Spontaneous
  Country: IT (occurrence: IT)
  Receive Date: 20230228
  Receipt Date: 20230228
  Transmission Date: 20230418
  Serious: Yes (Hospitalization)
  Sender: FDA-Public Use
  Company Number: None

PATIENT
  Age: 53 Year
  Sex: Male

DRUGS (1)
  1. GILENYA [Suspect]
     Active Substance: FINGOLIMOD HYDROCHLORIDE
     Indication: Relapsing-remitting multiple sclerosis
     Dosage: 0.5 MG (1 CP/DIE)
     Route: 048
     Dates: start: 201905, end: 20230112

REACTIONS (2)
  - Anogenital dysplasia [Recovering/Resolving]
  - Anogenital warts [Recovering/Resolving]

NARRATIVE: CASE EVENT DATE: 20220601
